FAERS Safety Report 9798968 (Version 1)
Quarter: 2014Q1

REPORT INFORMATION
  Report Type: Spontaneous
  Country: US (occurrence: None)
  Receive Date: 20140103
  Receipt Date: 20140103
  Transmission Date: 20141002
  Serious: Yes (Other)
  Sender: FDA-Public Use
  Company Number: None

PATIENT
  Age: 83 Year
  Sex: Female

DRUGS (2)
  1. INTRON A [Suspect]
     Indication: NEOPLASM MALIGNANT
     Dosage: INTRADERMALLY
     Dates: start: 20131129, end: 20131231
  2. COUMADIN [Concomitant]

REACTIONS (1)
  - International normalised ratio increased [None]
